FAERS Safety Report 25734427 (Version 2)
Quarter: 2025Q3

REPORT INFORMATION
  Report Type: Spontaneous
  Country: US (occurrence: US)
  Receive Date: 20250828
  Receipt Date: 20250908
  Transmission Date: 20251021
  Serious: Yes (Life-Threatening, Hospitalization)
  Sender: ROCHE
  Company Number: US-ROCHE-10000371512

PATIENT
  Age: 63 Year
  Sex: Male

DRUGS (12)
  1. CELLCEPT [Suspect]
     Active Substance: MYCOPHENOLATE MOFETIL
     Indication: Prophylaxis against transplant rejection
     Route: 042
  2. CELLCEPT [Suspect]
     Active Substance: MYCOPHENOLATE MOFETIL
     Route: 042
  3. METHYLPREDNISOLONE [Suspect]
     Active Substance: METHYLPREDNISOLONE
     Indication: Prophylaxis against transplant rejection
     Route: 042
  4. TACROLIMUS [Suspect]
     Active Substance: TACROLIMUS
     Indication: Prophylaxis against transplant rejection
     Route: 065
  5. PREDNISONE [Suspect]
     Active Substance: PREDNISONE
     Indication: Prophylaxis against transplant rejection
     Route: 065
  6. METHYLENE BLUE [Concomitant]
     Active Substance: METHYLENE BLUE
  7. NYSTATIN [Concomitant]
     Active Substance: NYSTATIN
     Route: 048
  8. FAMCICLOVIR [Concomitant]
     Active Substance: FAMCICLOVIR
  9. CEFTRIAXONE [Concomitant]
     Active Substance: CEFTRIAXONE
  10. LETERMOVIR [Concomitant]
     Active Substance: LETERMOVIR
     Indication: Infection prophylaxis
  11. SULFAMETHOXAZOLE\TRIMETHOPRIM [Concomitant]
     Active Substance: SULFAMETHOXAZOLE\TRIMETHOPRIM
  12. MEROPENEM [Concomitant]
     Active Substance: MEROPENEM

REACTIONS (4)
  - Strongyloidiasis [Recovering/Resolving]
  - Bacterial translocation [Recovering/Resolving]
  - Enterococcal infection [Recovering/Resolving]
  - Respiratory failure [Recovering/Resolving]
